FAERS Safety Report 5070400-8 (Version None)
Quarter: 2006Q3

REPORT INFORMATION
  Report Type: 
  Country: None (occurrence: None)
  Receive Date: 20060714
  Receipt Date: 20060413
  Transmission Date: 20061208
  Serious: No
  Sender: FDA-Public Use
  Company Number: 2006SP001677

PATIENT
  Age: 69 Year
  Sex: Female
  Weight: 86.1834 kg

DRUGS (14)
  1. LUNESTA [Suspect]
     Indication: INSOMNIA
     Dosage: 2 MG;ORAL
     Route: 048
     Dates: start: 20060408, end: 20060409
  2. EVISTA [Concomitant]
  3. XANAX [Concomitant]
  4. ATORVASTATIN CALCIUM [Concomitant]
  5. FEXOFENADINE [Concomitant]
  6. NASACORT AQ [Concomitant]
  7. OMEPRAZOLE [Concomitant]
  8. XALATAN [Concomitant]
  9. LEVOXYL [Concomitant]
  10. FORMOTEROL [Concomitant]
  11. QVAR 40 [Concomitant]
  12. TIOTROPIUM BROMIDE [Concomitant]
  13. ALBUTEROL [Concomitant]
  14. AMBIEN [Concomitant]

REACTIONS (3)
  - ABDOMINAL PAIN UPPER [None]
  - HEADACHE [None]
  - INSOMNIA [None]
